FAERS Safety Report 7356606-3 (Version None)
Quarter: 2011Q1

REPORT INFORMATION
  Report Type: 
  Country: None (occurrence: None)
  Receive Date: 20110316
  Receipt Date: 20110303
  Transmission Date: 20110831
  Serious: Yes (Hospitalization)
  Sender: FDA-Public Use
  Company Number: PHHY2011US17422

PATIENT
  Sex: Female

DRUGS (13)
  1. ASPIRIN [Concomitant]
  2. XANAX [Concomitant]
     Dosage: UNK
  3. CELEXA [Concomitant]
  4. APOMORPHINE [Suspect]
  5. REQUIP [Concomitant]
  6. LEVOXYL [Concomitant]
  7. VITAMIN D [Concomitant]
  8. AMIODARONE [Suspect]
  9. CARBIDOPA + LEVODOPA [Concomitant]
  10. LASIX [Concomitant]
  11. COUMADIN [Concomitant]
  12. COMTAN [Suspect]
     Dosage: 400 MG, QID
     Route: 048
  13. POTASSIUM [Concomitant]

REACTIONS (4)
  - RESPIRATORY DISTRESS [None]
  - ELECTROCARDIOGRAM QT PROLONGED [None]
  - ATRIAL FIBRILLATION [None]
  - VENTRICULAR DYSKINESIA [None]
